FAERS Safety Report 6889107-7 (Version None)
Quarter: 2010Q3

REPORT INFORMATION
  Report Type: 
  Country: None (occurrence: None)
  Receive Date: 20100730
  Receipt Date: 20071231
  Transmission Date: 20110219
  Serious: No
  Sender: FDA-Public Use
  Company Number: US-PFIZER INC-2008000718

PATIENT
  Sex: Male
  Weight: 84.09 kg

DRUGS (3)
  1. LIPITOR [Suspect]
     Dates: start: 20071213, end: 20071219
  2. LISINOPRIL [Suspect]
     Indication: BLOOD PRESSURE ABNORMAL
     Dates: start: 20071213, end: 20071219
  3. MULTI-VITAMINS [Concomitant]

REACTIONS (4)
  - CONSTIPATION [None]
  - MYALGIA [None]
  - PRURITUS [None]
  - RASH [None]
